FAERS Safety Report 8992067 (Version 1)
Quarter: 2012Q4

REPORT INFORMATION
  Report Type: 
  Country: US (occurrence: US)
  Receive Date: 20121231
  Receipt Date: 20121231
  Transmission Date: 20130627
  Serious: Yes (Other)
  Sender: FDA-Public Use
  Company Number: PHEH2012US014171

PATIENT
  Sex: Male

DRUGS (15)
  1. CLOZARIL [Suspect]
     Indication: SCHIZOPHRENIA
     Dosage: 500 mg three times a day
     Route: 048
  2. CLOZARIL [Suspect]
     Dosage: 575 mg, UNK
  3. CLOZARIL [Suspect]
     Dosage: 500 mg, QD
  4. CLOZARIL [Suspect]
     Dosage: 100 mg, QD
  5. CLOZARIL [Suspect]
     Dosage: 25 mg, QD
  6. CLOZARIL [Suspect]
     Dosage: 150 mg, BID
  7. CLOZARIL [Suspect]
     Dosage: 400 mg, QD
  8. CLOZARIL [Suspect]
     Dosage: 700 mg, QD
  9. LATUDA [Suspect]
     Dosage: UNK UKN, UNK
  10. DEPAKOTE [Concomitant]
     Indication: PSYCHOTIC DISORDER
     Dosage: 250 mg, QD
  11. DEPAKOTE [Concomitant]
     Dosage: 500 mg, BID
  12. DEPAKOTE [Concomitant]
     Dosage: 1250 mg, UNK
  13. DIVALPROEX SODIUM [Concomitant]
     Dosage: UNK UKN, UNK
  14. TOPROL XL [Concomitant]
     Dosage: UNK UKN, UNK
  15. LORAZEPAM [Concomitant]
     Dosage: 1 mg, TID

REACTIONS (5)
  - Aggression [Unknown]
  - Bipolar disorder [Unknown]
  - Psychotic disorder [Unknown]
  - Therapeutic response decreased [Unknown]
  - Drug ineffective [Unknown]
